FAERS Safety Report 16770983 (Version 1)
Quarter: 2019Q3

REPORT INFORMATION
  Report Type: Spontaneous
  Country: GB (occurrence: GB)
  Receive Date: 20190904
  Receipt Date: 20190904
  Transmission Date: 20191005
  Serious: Yes (Disabling)
  Sender: FDA-Public Use
  Company Number: GB-TEVA-2019-GB-1101011

PATIENT
  Age: 86 Year
  Sex: Female
  Weight: 31 kg

DRUGS (1)
  1. NITROFURANTOIN. [Suspect]
     Active Substance: NITROFURANTOIN
     Dosage: 200MG
     Route: 048
     Dates: start: 20190726, end: 20190801

REACTIONS (4)
  - Erythema [Unknown]
  - Dermatitis allergic [Recovering/Resolving]
  - Nausea [Unknown]
  - Blister [Unknown]

NARRATIVE: CASE EVENT DATE: 20190726
